FAERS Safety Report 4984449-4 (Version None)
Quarter: 2006Q2

REPORT INFORMATION
  Report Type: 
  Country: None (occurrence: None)
  Receive Date: 20060427
  Receipt Date: 20060220
  Transmission Date: 20061013
  Serious: Yes (Hospitalization)
  Sender: FDA-Public Use
  Company Number: JP-JPN-A200600682

PATIENT
  Age: 68 Year
  Sex: Female
  Weight: 45 kg

DRUGS (2)
  1. PAXIL [Suspect]
     Indication: DEPRESSION
     Route: 048
     Dates: start: 20030725, end: 20030728
  2. CARBIDOPA AND LEVODOPA [Concomitant]
     Indication: PARKINSON'S DISEASE
     Route: 065

REACTIONS (10)
  - ABASIA [None]
  - BRADYKINESIA [None]
  - CHILLS [None]
  - CONDITION AGGRAVATED [None]
  - HYPERHIDROSIS [None]
  - MASKED FACIES [None]
  - MUSCLE RIGIDITY [None]
  - PARKINSON'S DISEASE [None]
  - PYREXIA [None]
  - SEROTONIN SYNDROME [None]
